FAERS Safety Report 6924462-0 (Version None)
Quarter: 2010Q3

REPORT INFORMATION
  Report Type: 
  Country: None (occurrence: None)
  Receive Date: 20100810
  Receipt Date: 20100803
  Transmission Date: 20110219
  Serious: Yes (Hospitalization)
  Sender: FDA-Public Use
  Company Number: 2010SP042086

PATIENT
  Age: 19 Year
  Sex: Female

DRUGS (6)
  1. DESLORATADINE [Suspect]
     Indication: HYPERSENSITIVITY
     Dosage: PO
     Route: 048
     Dates: start: 20100401
  2. MEXITIL [Suspect]
     Indication: MYOTONIA
     Dosage: PO
     Route: 048
     Dates: start: 20100419, end: 20100424
  3. ZOMIG [Concomitant]
  4. MAXALT [Concomitant]
  5. LOPRESSOR [Concomitant]
  6. BOTOX [Concomitant]

REACTIONS (3)
  - FEELING ABNORMAL [None]
  - MALAISE [None]
  - SYNCOPE [None]
